FAERS Safety Report 24297618 (Version 1)
Quarter: 2024Q3

REPORT INFORMATION
  Report Type: Spontaneous
  Country: US (occurrence: US)
  Receive Date: 20240909
  Receipt Date: 20240909
  Transmission Date: 20241016
  Serious: No
  Sender: Haleon PLC
  Company Number: US-HALEON-2195824

PATIENT
  Age: 63 Year
  Sex: Male

DRUGS (2)
  1. ALLI [Suspect]
     Active Substance: ORLISTAT
     Indication: Weight decreased
     Dosage: TIME INTERVAL: 0.33333333 DAYS
  2. ALLI [Suspect]
     Active Substance: ORLISTAT
     Dosage: TIME INTERVAL: 0.33333333 DAYS

REACTIONS (1)
  - Drug ineffective [Unknown]
